FAERS Safety Report 14981197 (Version 1)
Quarter: 2018Q2

REPORT INFORMATION
  Report Type: Spontaneous
  Country: US (occurrence: US)
  Receive Date: 20180515
  Receipt Date: 20180515
  Transmission Date: 20180711
  Serious: Yes (Life-Threatening, Hospitalization, Disabling)
  Sender: FDA-Public Use
  Company Number: None

PATIENT
  Age: 68 Year
  Sex: Female
  Weight: 83.91 kg

DRUGS (11)
  1. CLONAZEPAM. [Concomitant]
     Active Substance: CLONAZEPAM
  2. SERTRALINE [Concomitant]
     Active Substance: SERTRALINE HYDROCHLORIDE
  3. WELLBRUTIN [Concomitant]
  4. PIZANIZONE [Concomitant]
  5. VITAMIN C [Concomitant]
     Active Substance: ASCORBIC ACID
  6. RISPERIDONE. [Suspect]
     Active Substance: RISPERIDONE
     Indication: DEPRESSION
     Dosage: ?          QUANTITY:60 DF DOSAGE FORM;?
     Route: 048
     Dates: start: 20160802, end: 20160901
  7. NO DRUG NAME [Concomitant]
  8. PRAVASTATIN. [Concomitant]
     Active Substance: PRAVASTATIN
  9. IBUPROPHEN [Concomitant]
     Active Substance: IBUPROFEN
  10. MULTI=-VITAMIN [Concomitant]
  11. FERROUS SULFATET [Concomitant]

REACTIONS (15)
  - Pneumonia aspiration [None]
  - Tardive dyskinesia [None]
  - Balance disorder [None]
  - Confusional state [None]
  - Depressed level of consciousness [None]
  - Weight decreased [None]
  - Crying [None]
  - Somnolence [None]
  - Multi-organ disorder [None]
  - Head discomfort [None]
  - Gait disturbance [None]
  - Memory impairment [None]
  - Fall [None]
  - Asthenia [None]
  - Hallucination [None]

NARRATIVE: CASE EVENT DATE: 201608
